FAERS Safety Report 18068063 (Version 4)
Quarter: 2020Q3

REPORT INFORMATION
  Report Type: Report from Study
  Country: US (occurrence: US)
  Receive Date: 20200724
  Receipt Date: 20200820
  Transmission Date: 20201103
  Serious: Yes (Hospitalization)
  Sender: FDA-Public Use
  Company Number: US-ACTELION-A-NJ2020-202104

PATIENT
  Sex: Male
  Weight: 116.1 kg

DRUGS (4)
  1. XARELTO [Concomitant]
     Active Substance: RIVAROXABAN
  2. ADEMPAS [Concomitant]
     Active Substance: RIOCIGUAT
  3. OPSUMIT [Suspect]
     Active Substance: MACITENTAN
     Indication: PULMONARY ARTERIAL HYPERTENSION
     Dosage: 10 MG, QD
     Route: 048
  4. UPTRAVI [Suspect]
     Active Substance: SELEXIPAG
     Indication: PULMONARY ARTERIAL HYPERTENSION
     Dosage: 1600 MCG, BID
     Route: 048

REACTIONS (3)
  - Fluid retention [Unknown]
  - Nasopharyngitis [Unknown]
  - Pneumonia [Unknown]
